FAERS Safety Report 4619049-9 (Version None)
Quarter: 2005Q2

REPORT INFORMATION
  Report Type: 
  Country: None (occurrence: None)
  Receive Date: 20050321
  Receipt Date: 20041104
  Transmission Date: 20051028
  Serious: Yes (Other)
  Sender: FDA-Public Use
  Company Number: 2004-11-0534

PATIENT
  Sex: Female
  Weight: 65.7716 kg

DRUGS (7)
  1. PEG-INTRON [Suspect]
     Indication: HEPATITIS C
     Dosage: ^48^ MCG Q WK SUBCUTANEOU
     Route: 058
     Dates: start: 20040227
  2. REBETOL [Suspect]
     Indication: HEPATITIS C
     Dosage: 1000 MG QD ORAL
     Route: 048
     Dates: start: 20040227
  3. CALTRATE TABLETS [Concomitant]
  4. CENTRUM SILVER TABLETS [Concomitant]
  5. PRILOSEC [Concomitant]
  6. ZOLOFT [Concomitant]
  7. NEXIUM [Concomitant]

REACTIONS (4)
  - AGGRESSION [None]
  - ANXIETY [None]
  - IRRITABILITY [None]
  - SKIN LACERATION [None]
